FAERS Safety Report 4981935-8 (Version None)
Quarter: 2006Q2

REPORT INFORMATION
  Report Type: 
  Country: None (occurrence: None)
  Receive Date: 20060425
  Receipt Date: 20050930
  Transmission Date: 20061013
  Serious: Yes (Death, Life-Threatening, Hospitalization, Other)
  Sender: FDA-Public Use
  Company Number: US-MERCK-0510USA00915

PATIENT
  Age: 72 Year
  Sex: Male

DRUGS (1)
  1. VIOXX [Suspect]
     Route: 048

REACTIONS (15)
  - ANGINA PECTORIS [None]
  - ARRHYTHMIA [None]
  - ATRIAL FIBRILLATION [None]
  - BRADYCARDIA [None]
  - CARDIAC ARREST [None]
  - CARDIOVASCULAR DISORDER [None]
  - CHRONIC OBSTRUCTIVE PULMONARY DISEASE [None]
  - CORONARY ARTERY DISEASE [None]
  - DEATH [None]
  - HYPERTENSION [None]
  - INJURY [None]
  - MYOCARDIAL INFARCTION [None]
  - ORGAN FAILURE [None]
  - PULMONARY EMBOLISM [None]
  - THROMBOSIS [None]
